FAERS Safety Report 5835060-4 (Version None)
Quarter: 2008Q3

REPORT INFORMATION
  Report Type: 
  Country: None (occurrence: None)
  Receive Date: 20080806
  Receipt Date: 20080730
  Transmission Date: 20090109
  Serious: Yes (Hospitalization, Other)
  Sender: FDA-Public Use
  Company Number: US-BAYER-200817944NA

PATIENT
  Age: 65 Year
  Sex: Female
  Weight: 60 kg

DRUGS (3)
  1. NEXAVAR [Suspect]
     Indication: HEPATIC NEOPLASM
     Dosage: TOTAL DAILY DOSE: 800 MG  UNIT DOSE: 200 MG
     Route: 048
     Dates: start: 20080228, end: 20080319
  2. NEXAVAR [Suspect]
     Dosage: TOTAL DAILY DOSE: 800 MG  UNIT DOSE: 200 MG
     Route: 048
     Dates: end: 20080501
  3. COUMADIN [Concomitant]

REACTIONS (13)
  - ALOPECIA [None]
  - ARTHRALGIA [None]
  - ASCITES [None]
  - DEHYDRATION [None]
  - DIARRHOEA [None]
  - HYPERCALCAEMIA [None]
  - INTERNATIONAL NORMALISED RATIO INCREASED [None]
  - NAUSEA [None]
  - PLEURAL EFFUSION [None]
  - PRURITUS [None]
  - RASH MACULAR [None]
  - VISUAL IMPAIRMENT [None]
  - VOMITING [None]
